FAERS Safety Report 25852866 (Version 2)
Quarter: 2025Q4

REPORT INFORMATION
  Report Type: Spontaneous
  Country: TN (occurrence: TN)
  Receive Date: 20250926
  Receipt Date: 20251009
  Transmission Date: 20260118
  Serious: Yes (Death, Other)
  Sender: PFIZER
  Company Number: TN-PFIZER INC-PV202500114859

PATIENT
  Age: 45 Year
  Sex: Female

DRUGS (1)
  1. CYTOTEC [Suspect]
     Active Substance: MISOPROSTOL
     Dosage: 4 TABLETS

REACTIONS (2)
  - Death [Fatal]
  - Angina pectoris [Unknown]
